FAERS Safety Report 16318239 (Version 1)
Quarter: 2019Q2

REPORT INFORMATION
  Report Type: Spontaneous
  Country: US (occurrence: US)
  Receive Date: 20190409
  Receipt Date: 20190409
  Transmission Date: 20190713
  Serious: Yes (Hospitalization)
  Sender: FDA-Public Use
  Company Number: None

PATIENT
  Age: 62 Year
  Sex: Male

DRUGS (18)
  1. FOLIC ACID. [Concomitant]
     Active Substance: FOLIC ACID
  2. MORPHINE SUL [Concomitant]
     Active Substance: MORPHINE SULFATE
  3. NEFEDIPINE [Concomitant]
  4. OMEPRAZOLE. [Concomitant]
     Active Substance: OMEPRAZOLE
  5. ELIQUIS [Concomitant]
     Active Substance: APIXABAN
  6. GABAPENTIN. [Concomitant]
     Active Substance: GABAPENTIN
  7. IBUPROFEN. [Concomitant]
     Active Substance: IBUPROFEN
  8. POTASSIUM [Concomitant]
     Active Substance: POTASSIUM
  9. QUETAPINE [Suspect]
     Active Substance: QUETIAPINE
  10. HUMIRA [Suspect]
     Active Substance: ADALIMUMAB
     Indication: RHEUMATOID ARTHRITIS
     Route: 058
     Dates: start: 20180613
  11. FUROSEMIDE. [Concomitant]
     Active Substance: FUROSEMIDE
  12. LISINOPRIL AND HYDROCHLOROTHIAZIDE [Suspect]
     Active Substance: HYDROCHLOROTHIAZIDE\LISINOPRIL
  13. ZOLPIDEM [Concomitant]
     Active Substance: ZOLPIDEM\ZOLPIDEM TARTRATE
  14. OXYCODONE [Concomitant]
     Active Substance: OXYCODONE
  15. NAPROXEN  SOD [Concomitant]
  16. NISOLDIPINE. [Concomitant]
     Active Substance: NISOLDIPINE
  17. LIDOTHOL [Concomitant]
     Active Substance: LIDOCAINE\MENTHOL
  18. VOLTAREN [Concomitant]
     Active Substance: DICLOFENAC SODIUM

REACTIONS (1)
  - Hospitalisation [None]
